FAERS Safety Report 14668125 (Version 1)
Quarter: 2018Q1

REPORT INFORMATION
  Report Type: Spontaneous
  Country: US (occurrence: US)
  Receive Date: 20180321
  Receipt Date: 20180321
  Transmission Date: 20180509
  Serious: Yes (Disabling)
  Sender: FDA-Public Use
  Company Number: None

PATIENT
  Sex: Female
  Weight: 26.55 kg

DRUGS (2)
  1. METHYLPHENIDATE ER [Suspect]
     Active Substance: METHYLPHENIDATE
     Indication: ATTENTION DEFICIT/HYPERACTIVITY DISORDER
     Dosage: ?          QUANTITY:1 TABLET(S);?
     Route: 048
     Dates: start: 20171215
  2. METHYLPHENIDATE ER 36MG [Concomitant]
     Active Substance: METHYLPHENIDATE

REACTIONS (5)
  - Educational problem [None]
  - Depressed mood [None]
  - Product substitution issue [None]
  - Disturbance in attention [None]
  - Drug effect decreased [None]
